FAERS Safety Report 20765641 (Version 1)
Quarter: 2022Q2

REPORT INFORMATION
  Report Type: Spontaneous
  Country: GB (occurrence: GB)
  Receive Date: 20220428
  Receipt Date: 20220428
  Transmission Date: 20220721
  Serious: Yes (Disabling, Other)
  Sender: FDA-Public Use
  Company Number: GB-MHRA-MED-202204202343332750-DS2NI

PATIENT
  Age: 47 Year
  Sex: Female
  Weight: 67 kg

DRUGS (2)
  1. TAMOXIFEN [Suspect]
     Active Substance: TAMOXIFEN
     Indication: Breast cancer
     Dosage: 20 MILLIGRAM
     Dates: start: 20110801
  2. TAMOXIFEN CITRATE [Suspect]
     Active Substance: TAMOXIFEN CITRATE
     Indication: Breast cancer female
     Dosage: 20 MILLIGRAM
     Dates: start: 20110801, end: 20200801

REACTIONS (2)
  - Atrophic vulvovaginitis [Recovered/Resolved]
  - Vaginal scarring [Recovered/Resolved with Sequelae]

NARRATIVE: CASE EVENT DATE: 20120201
